FAERS Safety Report 5421182-9 (Version None)
Quarter: 2007Q3

REPORT INFORMATION
  Report Type: 
  Country: None (occurrence: None)
  Receive Date: 20070821
  Receipt Date: 20070813
  Transmission Date: 20080115
  Serious: Yes (Disabling)
  Sender: FDA-Public Use
  Company Number: AU-ASTRAZENECA-2007AP04670

PATIENT
  Age: 471 Month
  Sex: Male

DRUGS (2)
  1. NEXIUM [Suspect]
     Indication: REFLUX GASTRITIS
     Route: 048
  2. NEXIUM [Suspect]
     Route: 048
     Dates: start: 20070301

REACTIONS (1)
  - VOCAL CORD THICKENING [None]
